FAERS Safety Report 19890572 (Version 1)
Quarter: 2021Q3

REPORT INFORMATION
  Report Type: Spontaneous
  Country: FR (occurrence: FR)
  Receive Date: 20210928
  Receipt Date: 20210928
  Transmission Date: 20211014
  Serious: Yes (Hospitalization)
  Sender: FDA-Public Use
  Company Number: NVSC2021FR214936

PATIENT
  Age: 38 Year
  Sex: Female
  Weight: 77 kg

DRUGS (3)
  1. PROGRAF [Interacting]
     Active Substance: TACROLIMUS
     Indication: HEART TRANSPLANT
     Dosage: 5.5 MG, QD
     Route: 048
     Dates: start: 2009, end: 20210830
  2. LANSOPRAZOLE MYLAN [Interacting]
     Active Substance: LANSOPRAZOLE
     Indication: PROPHYLAXIS AGAINST GASTROINTESTINAL ULCER
     Dosage: 15 MG, QD
     Route: 048
     Dates: start: 20210827, end: 20210831
  3. CERTICAN [Suspect]
     Active Substance: EVEROLIMUS
     Indication: HEART TRANSPLANT
     Dosage: 4.75 MG, QD
     Route: 048
     Dates: start: 2009, end: 20210830

REACTIONS (4)
  - Overdose [Recovered/Resolved]
  - Immunosuppressant drug level increased [Recovered/Resolved]
  - Drug interaction [Recovered/Resolved]
  - Renal failure [Recovered/Resolved]

NARRATIVE: CASE EVENT DATE: 20210827
